FAERS Safety Report 6200161-8 (Version None)
Quarter: 2009Q2

REPORT INFORMATION
  Report Type: 
  Country: None (occurrence: None)
  Receive Date: 20090522
  Receipt Date: 20090513
  Transmission Date: 20091009
  Serious: No
  Sender: FDA-Public Use
  Company Number: IE-WYE-G03461009

PATIENT
  Sex: Female
  Weight: 70 kg

DRUGS (2)
  1. PREMIQUE [Suspect]
     Dosage: UNKNOWN DOSE (DAILY FREQUENCY)
     Dates: start: 20010101, end: 20030825
  2. PILOCARPINE [Concomitant]
     Indication: GLAUCOMA
     Dosage: UNKNOWN
     Route: 061
     Dates: start: 20000101

REACTIONS (7)
  - DUPUYTREN'S CONTRACTURE [None]
  - GENERAL PHYSICAL HEALTH DETERIORATION [None]
  - MUSCULAR WEAKNESS [None]
  - MUSCULOSKELETAL STIFFNESS [None]
  - MYALGIA [None]
  - NECK PAIN [None]
  - SKIN MASS [None]
